FAERS Safety Report 6421051-1 (Version None)
Quarter: 2009Q4

REPORT INFORMATION
  Report Type: 
  Country: None (occurrence: None)
  Receive Date: 20091030
  Receipt Date: 20091022
  Transmission Date: 20100525
  Serious: Yes (Death, Hospitalization)
  Sender: FDA-Public Use
  Company Number: ES-ROCHE-664170

PATIENT
  Age: 57 Year
  Sex: Male

DRUGS (8)
  1. CAPECITABINE [Suspect]
     Dosage: FREQ:CYCLIC
     Route: 048
     Dates: start: 20090101
  2. CAPECITABINE [Suspect]
     Route: 048
     Dates: start: 20090529, end: 20090606
  3. CAPECITABINE [Suspect]
     Route: 048
     Dates: start: 20090702, end: 20090709
  4. FLUMIL [Concomitant]
     Route: 048
  5. PANTECTA [Concomitant]
     Route: 048
  6. RENITEC [Concomitant]
     Route: 048
  7. SPIRIVA [Concomitant]
     Route: 055
  8. URBASON [Concomitant]
     Route: 048

REACTIONS (2)
  - HEPATITIS [None]
  - HYPERBILIRUBINAEMIA [None]
